FAERS Safety Report 18788759 (Version 1)
Quarter: 2021Q1

REPORT INFORMATION
  Report Type: Other
  Country: US (occurrence: US)
  Receive Date: 20210125
  Receipt Date: 20210125
  Transmission Date: 20210419
  Serious: No
  Sender: FDA-Public Use
  Company Number: US-ACORDA-ACO_165363_2020

PATIENT
  Sex: Female

DRUGS (1)
  1. AMPYRA [Suspect]
     Active Substance: DALFAMPRIDINE
     Indication: MULTIPLE SCLEROSIS
     Dosage: UNK
     Route: 048

REACTIONS (8)
  - Anxiety [Unknown]
  - Poor quality sleep [Unknown]
  - Ill-defined disorder [Unknown]
  - Dysphagia [Unknown]
  - Condition aggravated [Unknown]
  - Insomnia [Unknown]
  - Impaired gastric emptying [Not Recovered/Not Resolved]
  - Fatigue [Unknown]
